FAERS Safety Report 7630334-9 (Version None)
Quarter: 2011Q3

REPORT INFORMATION
  Report Type: 
  Country: None (occurrence: None)
  Receive Date: 20110722
  Receipt Date: 20110714
  Transmission Date: 20111222
  Serious: Yes (Hospitalization, Other)
  Sender: FDA-Public Use
  Company Number: US-BAYER-201033756NA

PATIENT
  Age: 39 Year
  Sex: Female
  Weight: 58.05 kg

DRUGS (6)
  1. YASMIN [Suspect]
     Indication: PRODUCT USED FOR UNKNOWN INDICATION
     Dosage: UNK
     Route: 048
     Dates: start: 20060401, end: 20070501
  2. AMOXICILLIN [Concomitant]
  3. XANAX [Concomitant]
     Dosage: UNK UNK, PRN
  4. YAZ [Suspect]
     Indication: PRODUCT USED FOR UNKNOWN INDICATION
     Dosage: UNK
     Route: 048
     Dates: start: 20060401, end: 20070501
  5. DROSPIRENONE AND ETHINYL ESTRADIOL [Suspect]
     Indication: PRODUCT USED FOR UNKNOWN INDICATION
     Dosage: UNK
     Route: 048
     Dates: start: 20060401, end: 20070501
  6. ASCORBIC ACID [Concomitant]
     Dosage: UNK
     Dates: start: 20070101

REACTIONS (4)
  - CEREBROVASCULAR ACCIDENT [None]
  - CEREBRAL INFARCTION [None]
  - THROMBOSIS [None]
  - ANXIETY [None]
